FAERS Safety Report 4704116-1 (Version None)
Quarter: 2005Q2

REPORT INFORMATION
  Report Type: 
  Country: None (occurrence: None)
  Receive Date: 20050629
  Receipt Date: 20021118
  Transmission Date: 20051028
  Serious: Yes (Hospitalization)
  Sender: FDA-Public Use
  Company Number: 4588

PATIENT
  Age: 9 Year
  Sex: Male

DRUGS (4)
  1. ACYCLOVIR [Suspect]
     Indication: ENCEPHALITIS
     Dosage: 500 MG TID IV
     Route: 042
     Dates: start: 20021028, end: 20021029
  2. ERYTHROMYCIN [Concomitant]
  3. CEPTRIAXONE [Concomitant]
  4. ACETAMINOPHEN [Concomitant]

REACTIONS (6)
  - BLISTER [None]
  - EXTRAVASATION [None]
  - INFUSION RELATED REACTION [None]
  - MENINGITIS [None]
  - PAIN [None]
  - RENAL IMPAIRMENT [None]
